FAERS Safety Report 5043869-2 (Version None)
Quarter: 2006Q3

REPORT INFORMATION
  Report Type: 
  Country: None (occurrence: None)
  Receive Date: 20060706
  Receipt Date: 20060518
  Transmission Date: 20061208
  Serious: Yes (Hospitalization)
  Sender: FDA-Public Use
  Company Number: FR-AVENTIS-200611826FR

PATIENT
  Age: 43 Year
  Sex: Male

DRUGS (6)
  1. KETEK [Suspect]
     Indication: SINUSITIS
     Route: 048
     Dates: start: 20060329, end: 20060401
  2. SOLUPRED [Suspect]
     Indication: SINUSITIS
     Route: 048
     Dates: start: 20060329, end: 20060401
  3. SOLUPRED [Suspect]
     Route: 048
     Dates: start: 20060406
  4. PROPOFAN                           /00765201/ [Suspect]
     Indication: SINUSITIS
     Route: 048
     Dates: start: 20060329, end: 20060401
  5. DERINOX [Concomitant]
     Indication: SINUSITIS
  6. NEXXAIR [Concomitant]
     Indication: SINUSITIS

REACTIONS (5)
  - CEREBELLAR SYNDROME [None]
  - GAIT DISTURBANCE [None]
  - SOMNOLENCE [None]
  - VERTIGO [None]
  - VESTIBULAR DISORDER [None]
